FAERS Safety Report 5578037-9 (Version None)
Quarter: 2007Q4

REPORT INFORMATION
  Report Type: 
  Country: None (occurrence: None)
  Receive Date: 20071231
  Receipt Date: 20071218
  Transmission Date: 20080405
  Serious: Yes (Hospitalization, Other)
  Sender: FDA-Public Use
  Company Number: FR-BRISTOL-MYERS SQUIBB COMPANY-14023592

PATIENT
  Age: 1 Day
  Sex: Female
  Weight: 2 kg

DRUGS (2)
  1. GLUCOPHAGE [Suspect]
     Indication: TYPE 2 DIABETES MELLITUS
     Route: 064
     Dates: end: 20060518
  2. AVONEX [Suspect]
     Indication: MULTIPLE SCLEROSIS
     Dosage: 30 MICROGRAMS/0.5 ML.
     Route: 064
     Dates: end: 20060517

REACTIONS (3)
  - PREGNANCY [None]
  - PREMATURE BABY [None]
  - RENAL FAILURE [None]
